FAERS Safety Report 16269208 (Version 1)
Quarter: 2019Q2

REPORT INFORMATION
  Report Type: Spontaneous
  Country: US (occurrence: US)
  Receive Date: 20190328
  Receipt Date: 20190328
  Transmission Date: 20190711
  Serious: Yes (Hospitalization)
  Sender: FDA-Public Use
  Company Number: None

PATIENT
  Age: 6 Month
  Sex: Female

DRUGS (2)
  1. SYNAGIS [Concomitant]
     Active Substance: PALIVIZUMAB
     Dates: start: 20190206
  2. REVATIO [Suspect]
     Active Substance: SILDENAFIL CITRATE
     Indication: PULMONARY HYPERTENSION
     Route: 048
     Dates: start: 20190206

REACTIONS (2)
  - Cardiac operation [None]
  - Respiratory disorder [None]

NARRATIVE: CASE EVENT DATE: 20190226
